FAERS Safety Report 11797820 (Version 1)
Quarter: 2015Q4

REPORT INFORMATION
  Report Type: Spontaneous
  Country: US (occurrence: US)
  Receive Date: 20151203
  Receipt Date: 20151203
  Transmission Date: 20160305
  Serious: No
  Sender: FDA-Public Use
  Company Number: US-009507513-1511USA002995

PATIENT
  Age: 25 Year
  Sex: Female
  Weight: 149.21 kg

DRUGS (1)
  1. NEXPLANON [Suspect]
     Active Substance: ETONOGESTREL
     Dosage: UNK
     Route: 059
     Dates: start: 20150928, end: 20151005

REACTIONS (4)
  - Device difficult to use [Recovered/Resolved]
  - Device kink [Recovered/Resolved]
  - Medical device complication [Recovered/Resolved]
  - Discomfort [Unknown]

NARRATIVE: CASE EVENT DATE: 2015
